FAERS Safety Report 7594443-5 (Version None)
Quarter: 2011Q3

REPORT INFORMATION
  Report Type: 
  Country: None (occurrence: None)
  Receive Date: 20110707
  Receipt Date: 20110629
  Transmission Date: 20111222
  Serious: Yes (Hospitalization)
  Sender: FDA-Public Use
  Company Number: US-BRISTOL-MYERS SQUIBB COMPANY-15341829

PATIENT
  Age: 55 Year
  Sex: Male
  Weight: 71 kg

DRUGS (29)
  1. CETUXIMAB [Suspect]
     Indication: NON-SMALL CELL LUNG CANCER
     Dosage: NO.OF INF:4, RECENT INF ON 21SEP2010. 64.286MG
     Route: 042
     Dates: start: 20100831, end: 20100921
  2. ALIMTA [Suspect]
     Indication: NON-SMALL CELL LUNG CANCER
     Dosage: INTERRUPTED ON 21SEP10 NO.OF INF:2, RECENT INF ON 21SEP2010. 42.381MG
     Route: 042
     Dates: start: 20100831, end: 20100921
  3. DIFLUCAN [Concomitant]
  4. DIPHENHYDRAMINE HCL [Concomitant]
  5. ONDANSETRON [Concomitant]
     Route: 048
     Dates: start: 20101008
  6. ACETAMINOPHEN AND HYDROCODONE BITARTRATE [Concomitant]
  7. ZOLPIDEM [Concomitant]
     Indication: INSOMNIA
     Dosage: AT BEDTIME
     Route: 048
     Dates: start: 20101008
  8. HEPARIN LOCK-FLUSH [Concomitant]
     Dosage: 1 DF = 500 UNITS/5 ML SOLN
     Route: 042
     Dates: start: 20101008
  9. PREGABALIN [Concomitant]
     Indication: FIBROMYALGIA
     Dosage: 450MG
     Route: 048
     Dates: start: 20101008
  10. ACETAMINOPHEN [Concomitant]
  11. DOCUSATE [Concomitant]
     Route: 048
     Dates: start: 20101008
  12. PREDNISONE [Concomitant]
  13. HYDROXYZINE [Concomitant]
  14. VITAMIN B-12 [Concomitant]
     Indication: MEDICAL DIET
     Route: 030
     Dates: start: 20100826, end: 20100826
  15. CLOTRIMAZOLE [Concomitant]
     Dosage: CREAM
  16. IMODIUM [Concomitant]
     Dosage: 8 X DAY, PRN
     Route: 065
  17. CARBOPLATIN [Suspect]
     Indication: NON-SMALL CELL LUNG CANCER
     Dosage: 29.5238(UNITS NOT SPECIFIED); RECENT INF ON 21SEP2010 (2ND INF).
     Route: 042
     Dates: start: 20100831, end: 20100921
  18. HYDROMORPHONE HCL [Concomitant]
  19. SODIUM CHLORIDE [Concomitant]
     Dosage: 1 DF = 20MG/ML
     Route: 042
     Dates: start: 20101008
  20. OXYMORPHONE [Concomitant]
     Dosage: Q12H
     Route: 065
  21. FINASTERIDE [Concomitant]
     Route: 048
     Dates: start: 20101008
  22. FINASTERIDE [Concomitant]
  23. ALLOPURINOL [Concomitant]
     Indication: GOUT
     Dosage: WITH FOOD AT BREAK FAST.
     Route: 048
     Dates: start: 20101008
  24. FOLIC ACID [Concomitant]
     Route: 048
     Dates: start: 20101008
  25. TAMSULOSIN HCL [Concomitant]
     Indication: BENIGN PROSTATIC HYPERPLASIA
     Dosage: WITH FOOD AT DINNER.
     Route: 048
     Dates: start: 20101008
  26. NEOSPORIN [Concomitant]
  27. FENTANYL [Concomitant]
  28. VANCOMYCIN [Concomitant]
  29. AMITRIPTYLINE HCL [Concomitant]
     Route: 048
     Dates: start: 20101008

REACTIONS (2)
  - VASCULITIS [None]
  - FUNGAEMIA [None]
